FAERS Safety Report 6657207-2 (Version None)
Quarter: 2010Q1

REPORT INFORMATION
  Report Type: 
  Country: None (occurrence: None)
  Receive Date: 20100330
  Receipt Date: 20100322
  Transmission Date: 20100710
  Serious: Yes (Hospitalization, Other)
  Sender: FDA-Public Use
  Company Number: US-TEVA-229035USA

PATIENT
  Sex: Male

DRUGS (8)
  1. METHOTREXATE [Suspect]
     Indication: RHEUMATOID ARTHRITIS
     Dates: start: 20060726, end: 20091208
  2. ABATACEPT [Suspect]
     Indication: RHEUMATOID ARTHRITIS
     Route: 058
     Dates: start: 20081209, end: 20091208
  3. ATENOLOL [Concomitant]
     Dates: start: 20050111
  4. FOLIC ACID [Concomitant]
     Dates: start: 19950124
  5. TERAZOSIN HYDROCHLORIDE [Concomitant]
     Dates: start: 19990826
  6. DYAZIDE [Concomitant]
     Dates: start: 20050503
  7. PARACETAMOL [Concomitant]
     Dates: start: 19960101
  8. ENALAPRIL MALEATE [Concomitant]
     Dates: start: 19950101

REACTIONS (2)
  - CHOLECYSTITIS INFECTIVE [None]
  - GALLBLADDER CANCER [None]
